FAERS Safety Report 5680380-X (Version None)
Quarter: 2008Q1

REPORT INFORMATION
  Report Type: 
  Country: None (occurrence: None)
  Receive Date: 20080326
  Receipt Date: 20080325
  Transmission Date: 20080703
  Serious: Yes (Hospitalization)
  Sender: FDA-Public Use
  Company Number: A0717191A

PATIENT
  Age: 63 Year
  Sex: Male

DRUGS (3)
  1. NICORETTE [Suspect]
     Indication: SMOKING CESSATION THERAPY
     Route: 002
  2. NICORETTE [Suspect]
     Indication: SMOKING CESSATION THERAPY
     Route: 002
  3. NORVASC [Concomitant]
     Route: 048

REACTIONS (4)
  - CORONARY ARTERY BYPASS [None]
  - FLATULENCE [None]
  - INTENTIONAL DRUG MISUSE [None]
  - NAUSEA [None]
